FAERS Safety Report 24782455 (Version 1)
Quarter: 2024Q4

REPORT INFORMATION
  Report Type: Spontaneous
  Country: US (occurrence: None)
  Receive Date: 20241226
  Receipt Date: 20241226
  Transmission Date: 20250114
  Serious: Yes (Death)
  Sender: Public
  Company Number: None

PATIENT
  Sex: Female

DRUGS (2)
  1. CEFIDEROCOL [Suspect]
     Active Substance: CEFIDEROCOL
     Indication: Achromobacter infection
     Dates: start: 20241209, end: 20241225
  2. FETROJA [Concomitant]
     Active Substance: CEFIDEROCOL SULFATE TOSYLATE
     Dates: start: 20241209, end: 20241225

REACTIONS (1)
  - Thrombocytopenia [None]
